FAERS Safety Report 18101938 (Version 5)
Quarter: 2021Q2

REPORT INFORMATION
  Report Type: Report from Study
  Country: None (occurrence: NL)
  Receive Date: 20200802
  Receipt Date: 20210524
  Transmission Date: 20210717
  Serious: Yes (Other)
  Sender: FDA-Public Use
  Company Number: NL-ABBVIE-19S-114-2773131-00

PATIENT
  Sex: Male
  Weight: 63 kg

DRUGS (9)
  1. DUODOPA [Suspect]
     Active Substance: CARBIDOPA\LEVODOPA
     Dosage: MD: 7; CD: 3.7; ED: 2 REMAINS AT 16 HR
     Route: 050
  2. RIVASTIGMINE. [Concomitant]
     Active Substance: RIVASTIGMINE
     Indication: HALLUCINATION
  3. DUODOPA [Suspect]
     Active Substance: CARBIDOPA\LEVODOPA
     Indication: PARKINSON^S DISEASE
     Dosage: MD 5.5, CD 3.6, ED 2.0 REMAINS AT 16 HOURS
     Route: 050
  4. MADOPAR [Concomitant]
     Active Substance: BENSERAZIDE HYDROCHLORIDE\LEVODOPA
     Indication: PRODUCT USED FOR UNKNOWN INDICATION
  5. CALOGEN [Concomitant]
     Indication: PRODUCT USED FOR UNKNOWN INDICATION
     Dosage: CALOGEN 3 X 30 ML DAILY
  6. DUODOPA [Suspect]
     Active Substance: CARBIDOPA\LEVODOPA
     Dosage: MD: 6ML, CD: 3.7ML/H, ED: 2ML;
     Route: 050
  7. DUODOPA [Suspect]
     Active Substance: CARBIDOPA\LEVODOPA
     Dosage: MD: 7.0 ML CD: 3.7 ML/H ED: 2.0 ML
     Route: 050
  8. NUTRIDRINK [Concomitant]
     Active Substance: CARBOHYDRATES\FATTY ACIDS\MINERALS\PROTEIN\VITAMINS
     Indication: PRODUCT USED FOR UNKNOWN INDICATION
     Dosage: 1 BOTTLE OF NUTRIDRINK PER DAY
  9. FANTONAL [Concomitant]
     Indication: PRODUCT USED FOR UNKNOWN INDICATION

REACTIONS (41)
  - Malignant melanoma [Unknown]
  - Stereotypy [Not Recovered/Not Resolved]
  - Muscle rigidity [Not Recovered/Not Resolved]
  - Feeling abnormal [Not Recovered/Not Resolved]
  - Somnolence [Recovered/Resolved]
  - Urinary incontinence [Unknown]
  - Mobility decreased [Unknown]
  - General physical condition abnormal [Not Recovered/Not Resolved]
  - Gait disturbance [Not Recovered/Not Resolved]
  - Somnolence [Not Recovered/Not Resolved]
  - Dyskinesia [Recovering/Resolving]
  - Device issue [Unknown]
  - Musculoskeletal stiffness [Not Recovered/Not Resolved]
  - Cognitive disorder [Not Recovered/Not Resolved]
  - Weight decreased [Recovering/Resolving]
  - Dysuria [Unknown]
  - Bradyphrenia [Not Recovered/Not Resolved]
  - Device difficult to use [Unknown]
  - Speech disorder [Not Recovered/Not Resolved]
  - Hallucination, visual [Not Recovered/Not Resolved]
  - Nightmare [Not Recovered/Not Resolved]
  - Insomnia [Recovered/Resolved]
  - Freezing phenomenon [Not Recovered/Not Resolved]
  - On and off phenomenon [Not Recovered/Not Resolved]
  - Stoma site erythema [Recovered/Resolved]
  - Fall [Not Recovered/Not Resolved]
  - Fall [Unknown]
  - Sensory disturbance [Not Recovered/Not Resolved]
  - Weight gain poor [Not Recovered/Not Resolved]
  - Dystonia [Not Recovered/Not Resolved]
  - Fatigue [Not Recovered/Not Resolved]
  - Decreased appetite [Not Recovered/Not Resolved]
  - Therapeutic product effect decreased [Unknown]
  - Hallucination [Not Recovered/Not Resolved]
  - Memory impairment [Not Recovered/Not Resolved]
  - Fibroma [Recovered/Resolved]
  - Impaired self-care [Not Recovered/Not Resolved]
  - Appetite disorder [Unknown]
  - Dementia [Not Recovered/Not Resolved]
  - Confusional state [Not Recovered/Not Resolved]
  - Stoma site discharge [Recovered/Resolved]
